FAERS Safety Report 7785197-8 (Version None)
Quarter: 2011Q3

REPORT INFORMATION
  Report Type: 
  Country: None (occurrence: None)
  Receive Date: 20110929
  Receipt Date: 20071022
  Transmission Date: 20111222
  Serious: No
  Sender: FDA-Public Use
  Company Number: 2007BI022742

PATIENT
  Sex: Female

DRUGS (4)
  1. TYSABRI [Suspect]
     Route: 042
     Dates: start: 20090102
  2. TYSABRI [Suspect]
     Route: 042
     Dates: start: 20071130, end: 20080407
  3. TYSABRI [Suspect]
     Indication: MULTIPLE SCLEROSIS
     Route: 042
     Dates: start: 20070101
  4. TYSABRI [Suspect]
     Route: 042
     Dates: start: 20080917, end: 20081022

REACTIONS (7)
  - MALAISE [None]
  - ABASIA [None]
  - MEMORY IMPAIRMENT [None]
  - STRESS [None]
  - BACK PAIN [None]
  - GAIT DISTURBANCE [None]
  - FATIGUE [None]
